FAERS Safety Report 5078192-3 (Version None)
Quarter: 2006Q3

REPORT INFORMATION
  Report Type: 
  Country: None (occurrence: None)
  Receive Date: 20060725
  Receipt Date: 20060327
  Transmission Date: 20061208
  Serious: No
  Sender: FDA-Public Use
  Company Number: 2006-BP-02851BP

PATIENT
  Sex: 0

DRUGS (1)
  1. APTIVUS/RITONAVIR CAPSULES [Suspect]
     Dosage: (STRENGTH: TPV/RTV)

REACTIONS (1)
  - RASH [None]
